FAERS Safety Report 8763285 (Version 2)
Quarter: 2012Q4

REPORT INFORMATION
  Report Type: 
  Country: NL (occurrence: NL)
  Receive Date: 20120831
  Receipt Date: 20120924
  Transmission Date: 20130627
  Serious: Yes (Hospitalization)
  Sender: FDA-Public Use
  Company Number: NL-GENZYME-CLOF-1002208

PATIENT
  Age: 51 Year
  Sex: Female
  Weight: 52 kg

DRUGS (4)
  1. EVOLTRA [Suspect]
     Indication: ACUTE MYELOID LEUKAEMIA
     Dosage: 20 mg, qd
     Route: 042
     Dates: start: 20111130, end: 20120104
  2. CYCLOPHOSPHAMIDE [Suspect]
     Indication: ACUTE MYELOID LEUKAEMIA
     Dosage: 4380 mg, UNK
     Route: 042
     Dates: start: 20120201
  3. COTRIMOXAZOLE [Suspect]
     Indication: PROPHYLAXIS
     Dosage: 480 mg, UNK
     Route: 048
     Dates: start: 20120120
  4. PREDNISOLONE [Concomitant]
     Indication: GRAFT VERSUS HOST DISEASE
     Dosage: 40 mg, UNK
     Route: 048
     Dates: start: 20120611, end: 20120630

REACTIONS (6)
  - Decreased appetite [Not Recovered/Not Resolved]
  - Graft versus host disease [Not Recovered/Not Resolved]
  - Staphylococcal infection [Recovered/Resolved]
  - Vomiting [Recovered/Resolved]
  - Pyrexia [Recovered/Resolved]
  - Chills [Recovered/Resolved]
